FAERS Safety Report 4299051-X (Version None)
Quarter: 2004Q1

REPORT INFORMATION
  Report Type: 
  Country: None (occurrence: None)
  Receive Date: 20040217
  Receipt Date: 20040203
  Transmission Date: 20041129
  Serious: Yes (Other)
  Sender: FDA-Public Use
  Company Number: FROV000164

PATIENT
  Age: 31 Year
  Sex: Female

DRUGS (1)
  1. FROVA [Suspect]
     Indication: MIGRAINE
     Dosage: 2.5 MG EVERY 2 DAYS ORAL
     Route: 048
     Dates: start: 20031116

REACTIONS (9)
  - ASTHENIA [None]
  - BLOOD CHOLESTEROL INCREASED [None]
  - CEREBROVASCULAR ACCIDENT [None]
  - CERVICAL VERTEBRA INJURY [None]
  - CONVULSION [None]
  - INFLAMMATION [None]
  - ROAD TRAFFIC ACCIDENT [None]
  - SPONDYLOSIS [None]
  - WHIPLASH INJURY [None]
